FAERS Safety Report 23902693 (Version 1)
Quarter: 2024Q2

REPORT INFORMATION
  Report Type: Spontaneous
  Country: US (occurrence: US)
  Receive Date: 20240527
  Receipt Date: 20240527
  Transmission Date: 20240716
  Serious: No
  Sender: FDA-Public Use
  Company Number: US-TEVA-VS-3198395

PATIENT

DRUGS (1)
  1. TESTOSTERONE [Suspect]
     Active Substance: TESTOSTERONE
     Indication: Product used for unknown indication
     Dosage: FORM STRENGTH: 2 %
     Route: 065

REACTIONS (4)
  - Product use issue [Unknown]
  - Fatigue [Unknown]
  - Product supply issue [Unknown]
  - Adverse event [Unknown]
